FAERS Safety Report 21102907 (Version 3)
Quarter: 2022Q4

REPORT INFORMATION
  Report Type: Spontaneous
  Country: FR (occurrence: FR)
  Receive Date: 20220720
  Receipt Date: 20221220
  Transmission Date: 20230113
  Serious: Yes (Death, Life-Threatening, Hospitalization, Disabling, Other)
  Sender: FDA-Public Use
  Company Number: FR-GLAXOSMITHKLINE-FR2022EME101441

PATIENT
  Age: 96 Year
  Sex: Female

DRUGS (9)
  1. AMOXICILLIN\CLAVULANIC ACID [Suspect]
     Active Substance: AMOXICILLIN\CLAVULANIC ACID
     Indication: Pneumonia
     Dosage: UNK
     Route: 048
     Dates: start: 20191026, end: 20191028
  2. AMOXICILLIN\CLAVULANIC ACID [Suspect]
     Active Substance: AMOXICILLIN\CLAVULANIC ACID
     Indication: Acute pulmonary oedema
  3. ENOXAPARIN [Suspect]
     Active Substance: ENOXAPARIN
     Indication: Acute pulmonary oedema
     Dosage: UNK
     Route: 065
  4. ENOXAPARIN [Suspect]
     Active Substance: ENOXAPARIN
     Indication: Pneumonia
     Dosage: 1 DOSAGE FORM
     Route: 058
     Dates: start: 20191127, end: 20191128
  5. LOVENOX [Suspect]
     Active Substance: ENOXAPARIN SODIUM
     Indication: Atrial fibrillation
     Dosage: 1 DOSAGE FORM
     Route: 058
     Dates: start: 20191127, end: 20191128
  6. FUROSEMIDE [Concomitant]
     Active Substance: FUROSEMIDE
     Indication: Pneumonia
     Dosage: UNK
     Route: 065
  7. FUROSEMIDE [Concomitant]
     Active Substance: FUROSEMIDE
     Indication: Acute pulmonary oedema
  8. ISOSORBIDE [Concomitant]
     Active Substance: ISOSORBIDE
     Indication: Pneumonia
     Dosage: UNK
     Route: 065
  9. ISOSORBIDE [Concomitant]
     Active Substance: ISOSORBIDE
     Indication: Acute pulmonary oedema

REACTIONS (7)
  - Cardiac failure [Fatal]
  - Multiple organ dysfunction syndrome [Fatal]
  - Renal failure [Fatal]
  - Septic shock [Fatal]
  - Generalised bullous fixed drug eruption [Unknown]
  - Product prescribing error [Fatal]
  - Medication error [Unknown]

NARRATIVE: CASE EVENT DATE: 20191028
